FAERS Safety Report 9932595 (Version 1)
Quarter: 2014Q1

REPORT INFORMATION
  Report Type: Spontaneous
  Country: US (occurrence: US)
  Receive Date: 20140228
  Receipt Date: 20140228
  Transmission Date: 20141002
  Serious: No
  Sender: FDA-Public Use
  Company Number: US-GLAXOSMITHKLINE-A1013488A

PATIENT
  Age: 51 Year
  Sex: Female
  Weight: 65.9 kg

DRUGS (3)
  1. SUMATRIPTAN [Suspect]
     Indication: MIGRAINE
     Dosage: 6MG AS REQUIRED
     Route: 042
  2. GSK AUTOINJECTOR [Suspect]
     Route: 042
  3. ALEVE [Concomitant]

REACTIONS (5)
  - Migraine [Not Recovered/Not Resolved]
  - Injection site pain [Not Recovered/Not Resolved]
  - Injection site bruising [Not Recovered/Not Resolved]
  - Drug level increased [Not Recovered/Not Resolved]
  - Product quality issue [Unknown]
